FAERS Safety Report 6676478-X (Version None)
Quarter: 2010Q2

REPORT INFORMATION
  Report Type: 
  Country: None (occurrence: None)
  Receive Date: 20100412
  Receipt Date: 20100407
  Transmission Date: 20101027
  Serious: Yes (Death, Other)
  Sender: FDA-Public Use
  Company Number: PHHY2010AR21397

PATIENT
  Sex: Male

DRUGS (1)
  1. EXELON [Suspect]
     Indication: DEMENTIA
     Dosage: 6 MG (2 TABLETS DAILY)

REACTIONS (4)
  - CARDIO-RESPIRATORY ARREST [None]
  - DECREASED APPETITE [None]
  - FALL [None]
  - GENERAL PHYSICAL HEALTH DETERIORATION [None]
